FAERS Safety Report 5694298-X (Version None)
Quarter: 2008Q2

REPORT INFORMATION
  Report Type: 
  Country: None (occurrence: None)
  Receive Date: 20080402
  Receipt Date: 20080321
  Transmission Date: 20081010
  Serious: Yes (Hospitalization)
  Sender: FDA-Public Use
  Company Number: MEDI-0006701

PATIENT
  Age: 2 Month
  Sex: Female
  Weight: 2.6 kg

DRUGS (8)
  1. SYNAGIS [Suspect]
     Dosage: 22 MG, 1 IN 1 M
     Dates: start: 20070921, end: 20070921
  2. SYNAGIS [Suspect]
     Dosage: 22 MG, 1 IN 1 M
     Dates: start: 20071026
  3. SYNAGIS [Suspect]
     Dosage: 22 MG, 1 IN 1 M
     Dates: start: 20071126
  4. SYNAGIS [Suspect]
     Dosage: 22 MG, 1 IN 1 M
     Dates: start: 20071227
  5. SYNAGIS [Suspect]
     Dosage: 22 MG, 1 IN 1 M
     Dates: start: 20080131
  6. THEOPHYLLINE [Concomitant]
  7. FERRUMMATE (FERROUS FUMARATE) [Concomitant]
  8. ALVITYL (VITAMINS NOS) [Concomitant]

REACTIONS (1)
  - RETINOPATHY OF PREMATURITY [None]
